FAERS Safety Report 25425349 (Version 2)
Quarter: 2025Q2

REPORT INFORMATION
  Report Type: Report from Study
  Country: US (occurrence: US)
  Receive Date: 20250611
  Receipt Date: 20250620
  Transmission Date: 20250717
  Serious: Yes (Other)
  Sender: MALLINCKRODT
  Company Number: US-MALLINCKRODT-MNK202503273

PATIENT
  Age: 56 Year
  Sex: Female

DRUGS (3)
  1. CORTICOTROPIN [Suspect]
     Active Substance: CORTICOTROPIN
     Indication: Ocular pemphigoid
     Route: 058
     Dates: start: 20250522, end: 20250528
  2. ACRIVASTINE [Concomitant]
     Active Substance: ACRIVASTINE
  3. RITUXAN [Concomitant]
     Active Substance: RITUXIMAB

REACTIONS (9)
  - Blood glucose increased [Recovered/Resolved]
  - Pulmonary pain [Unknown]
  - Productive cough [Recovering/Resolving]
  - Dyspnoea [Recovering/Resolving]
  - Chest discomfort [Recovering/Resolving]
  - Injection site pruritus [Recovered/Resolved]
  - Injection site discolouration [Recovered/Resolved]
  - Hypersensitivity [Unknown]
  - Drug ineffective [Unknown]

NARRATIVE: CASE EVENT DATE: 20250101
